FAERS Safety Report 11008529 (Version 1)
Quarter: 2015Q2

REPORT INFORMATION
  Report Type: Report from Study
  Country: HK (occurrence: HK)
  Receive Date: 20150410
  Receipt Date: 20150410
  Transmission Date: 20150821
  Serious: Yes (Death)
  Sender: FDA-Public Use
  Company Number: HK-ASTRAZENECA-2015SE32766

PATIENT
  Age: 62 Year
  Sex: Female

DRUGS (4)
  1. PARACETAMOL/DEXTROPROPOXYPHENE (DOLOGESIC) [Suspect]
     Active Substance: ACETAMINOPHEN\PROPOXYPHENE
     Route: 048
  2. THYROXINE [Suspect]
     Active Substance: LEVOTHYROXINE
     Route: 048
  3. QUETIAPINE [Suspect]
     Active Substance: QUETIAPINE
     Route: 048
  4. CHLORPROMAZINE [Suspect]
     Active Substance: CHLORPROMAZINE
     Route: 048

REACTIONS (2)
  - Cardiac arrest [Fatal]
  - Overdose [Fatal]
